FAERS Safety Report 16756151 (Version 2)
Quarter: 2019Q3

REPORT INFORMATION
  Report Type: Spontaneous
  Country: IT (occurrence: IT)
  Receive Date: 20190829
  Receipt Date: 20190924
  Transmission Date: 20191005
  Serious: Yes (Other)
  Sender: FDA-Public Use
  Company Number: IT-AMGEN-ITASP2019135738

PATIENT
  Age: 49 Year
  Sex: Female

DRUGS (2)
  1. PENTACOL [Concomitant]
     Active Substance: MESALAMINE
  2. AMGEVITA [Suspect]
     Active Substance: ADALIMUMAB
     Indication: COLITIS ULCERATIVE
     Dosage: 40 MILLIGRAM, CYCLICAL
     Route: 058

REACTIONS (2)
  - Therapy non-responder [Recovered/Resolved]
  - Colitis ulcerative [Recovered/Resolved]

NARRATIVE: CASE EVENT DATE: 20190423
